FAERS Safety Report 21468902 (Version 2)
Quarter: 2022Q4

REPORT INFORMATION
  Report Type: Spontaneous
  Country: NL (occurrence: NL)
  Receive Date: 20221018
  Receipt Date: 20221025
  Transmission Date: 20230113
  Serious: Yes (Hospitalization)
  Sender: FDA-Public Use
  Company Number: NL-LRB-00832746

PATIENT
  Sex: Female
  Weight: 75 kg

DRUGS (12)
  1. HUMIRA [Suspect]
     Active Substance: ADALIMUMAB
     Indication: Rheumatoid arthritis
     Dosage: 1 INJECTION SUBCUTANEOUS PER 2 WEEKS.?ADALIMUMAB INJECTION LIQUID 100MG/ML / HUMIRA 40 INJECTION ...
     Route: 058
     Dates: start: 20190222
  2. HYDROCHLOROTHIAZIDE [Concomitant]
     Active Substance: HYDROCHLOROTHIAZIDE
     Indication: Product used for unknown indication
     Dosage: TABLET, 25 MG (MILLIGRAM)
     Route: 048
  3. Hypromellose eyedrops LS  3.2 MG/ML / ARTELAC eye drops 3.2MG/ML FL... [Concomitant]
     Indication: Product used for unknown indication
     Dosage: EYE DROPS 3.2 MG/ML (MILLIGRAM PER MILLILITER)
  4. Verapamil sugar-coated pill  40MG [Concomitant]
     Indication: Product used for unknown indication
     Dosage: TABLET, 40 MG (MILLIGRAM)
     Route: 048
  5. Alfacalcidol capsule 0.5 microgram [Concomitant]
     Indication: Product used for unknown indication
     Dosage: CAPSULE, 0.5 MICROGRAM
  6. acetylsalicylic acid TABLET  80MG [Concomitant]
     Indication: Product used for unknown indication
     Dosage: TABLET, 80 MG (MILLIGRAM)
     Route: 048
  7. ferro fumarate TABLET 200MG [Concomitant]
     Indication: Product used for unknown indication
     Dosage: TABLET, 200 MG (MILLIGRAM)
     Route: 048
  8. Insulin DETEMIR Injection liquid 100 Units/ML / LEVEMIR FLEX-PEN in... [Concomitant]
     Indication: Product used for unknown indication
     Dosage: INJECTION LIQUID, 100 UNITS/ML (UNITS PER MILLILITER)
     Route: 065
  9. sulfasalazin gastric acid restistant tablet 500MG [Concomitant]
     Indication: Product used for unknown indication
     Dosage: GASTRIC ACID RESTISTANT, 500 MG (MILLIGRAM)
     Route: 048
  10. LOSARTAN [Concomitant]
     Active Substance: LOSARTAN
     Indication: Product used for unknown indication
     Dosage: FILM-COATED TABLET, 100 MG (MILLIGRAM)
     Route: 048
  11. pantoprazol gastric acid resistant tablet 40MG [Concomitant]
     Indication: Product used for unknown indication
     Dosage: GASTRIC ACID RESITANT TABLET, 40 MG (MILLIGRAM)
  12. Insulin LISPRO 100 Unit/ML Injection liquid / HUMALOG injection liq... [Concomitant]
     Indication: Product used for unknown indication
     Dosage: INJECTION LIQUID 100 UNITS/ML (UNITS PER MILLILITER)

REACTIONS (1)
  - Hypoglycaemia [Not Recovered/Not Resolved]
